FAERS Safety Report 6149129-0 (Version None)
Quarter: 2009Q2

REPORT INFORMATION
  Report Type: 
  Country: None (occurrence: None)
  Receive Date: 20090407
  Receipt Date: 20090217
  Transmission Date: 20091009
  Serious: Yes (Other)
  Sender: FDA-Public Use
  Company Number: 1000003926

PATIENT
  Age: 83 Year
  Sex: Female

DRUGS (3)
  1. NEBIVOLOL HCL [Suspect]
     Indication: HYPERTENSION
     Dosage: 5 MG (5 MG,1 IN 1 D),ORAL
     Route: 048
     Dates: start: 20090130, end: 20090210
  2. EUTHYROX [Concomitant]
  3. VITAMIN B-12 [Concomitant]

REACTIONS (7)
  - ABDOMINAL PAIN [None]
  - CONDITION AGGRAVATED [None]
  - DIZZINESS [None]
  - GASTRITIS [None]
  - HEADACHE [None]
  - NAUSEA [None]
  - VENTRICULAR ARRHYTHMIA [None]
